FAERS Safety Report 15894675 (Version 8)
Quarter: 2019Q4

REPORT INFORMATION
  Report Type: Spontaneous
  Country: US (occurrence: US)
  Receive Date: 20190131
  Receipt Date: 20191002
  Transmission Date: 20200122
  Serious: Yes (Other)
  Sender: FDA-Public Use
  Company Number: US-PFIZER INC-2019044473

PATIENT
  Sex: Female
  Weight: 58.96 kg

DRUGS (9)
  1. LYRICA [Suspect]
     Active Substance: PREGABALIN
     Indication: PAIN
     Dosage: 150 MG, 3X/DAY
     Route: 048
     Dates: start: 1999
  2. LYRICA [Suspect]
     Active Substance: PREGABALIN
     Dosage: 1 DF, 1X/DAY (ONE CAPSULE A DAY)
  3. LYRICA [Suspect]
     Active Substance: PREGABALIN
     Indication: NEURALGIA
     Dosage: 150 MG, 2X/DAY (ONE AT MORNING, ONE AT NIGHT)
     Route: 048
  4. LYRICA [Suspect]
     Active Substance: PREGABALIN
     Dosage: 2 DF, 1X/DAY (2 EACH 24 HOURS)
  5. LYRICA [Suspect]
     Active Substance: PREGABALIN
     Dosage: UNK
  6. LYRICA [Suspect]
     Active Substance: PREGABALIN
     Indication: FIBROMYALGIA
     Dosage: 3 DF, 1X/DAY (INITIALLY 3 CAPSULES A DAY)
  7. HYDROCODONE [Suspect]
     Active Substance: HYDROCODONE
     Indication: PAIN
     Dosage: UNK, 2X/DAY
     Route: 048
  8. LYRICA [Suspect]
     Active Substance: PREGABALIN
     Dosage: UNK, 2X/DAY
  9. LYRICA [Suspect]
     Active Substance: PREGABALIN
     Dosage: 150 MG, 2X/DAY

REACTIONS (16)
  - Intentional product use issue [Unknown]
  - Hypertension [Unknown]
  - Weight increased [Unknown]
  - Myocardial infarction [Unknown]
  - Malaise [Unknown]
  - Gait disturbance [Unknown]
  - Bronchitis viral [Unknown]
  - Spinal compression fracture [Unknown]
  - Dysgraphia [Unknown]
  - Arthropathy [Unknown]
  - Swelling [Unknown]
  - Abdominal pain upper [Unknown]
  - Fluid retention [Unknown]
  - Cerebrovascular accident [Unknown]
  - Back pain [Not Recovered/Not Resolved]
  - Nausea [Unknown]

NARRATIVE: CASE EVENT DATE: 2018
